FAERS Safety Report 7021991-9 (Version None)
Quarter: 2010Q3

REPORT INFORMATION
  Report Type: 
  Country: None (occurrence: None)
  Receive Date: 20100930
  Receipt Date: 20100921
  Transmission Date: 20110219
  Serious: Yes (Other)
  Sender: FDA-Public Use
  Company Number: US-US-EMD SERONO, INC.-7016965

PATIENT
  Sex: Female

DRUGS (1)
  1. REBIF [Suspect]
     Indication: PRODUCT USED FOR UNKNOWN INDICATION
     Route: 058
     Dates: start: 20100810, end: 20100913

REACTIONS (5)
  - BALANCE DISORDER [None]
  - CHILLS [None]
  - HYPOAESTHESIA [None]
  - HYPOTONIA [None]
  - PYREXIA [None]
